FAERS Safety Report 12681564 (Version 2)
Quarter: 2016Q3

REPORT INFORMATION
  Report Type: Report from Study
  Country: US (occurrence: US)
  Receive Date: 20160824
  Receipt Date: 20160902
  Transmission Date: 20161109
  Serious: Yes (Hospitalization, Other)
  Sender: FDA-Public Use
  Company Number: US-AMGEN-USASL2016109195

PATIENT
  Age: 73 Year
  Sex: Female

DRUGS (1)
  1. ENBREL [Suspect]
     Active Substance: ETANERCEPT
     Indication: PSORIASIS
     Dosage: UNK UNK, 2 TIMES/WK
     Route: 065

REACTIONS (5)
  - Productive cough [Not Recovered/Not Resolved]
  - Pancreatitis [Unknown]
  - Chest discomfort [Unknown]
  - Wheezing [Unknown]
  - Ulcer [Unknown]

NARRATIVE: CASE EVENT DATE: 2016
